FAERS Safety Report 12427450 (Version 1)
Quarter: 2016Q2

REPORT INFORMATION
  Report Type: Spontaneous
  Country: US (occurrence: US)
  Receive Date: 20160602
  Receipt Date: 20160602
  Transmission Date: 20160815
  Serious: Yes (Other)
  Sender: FDA-Public Use
  Company Number: US-AMGEN-USASP2016068196

PATIENT
  Age: 70 Year
  Sex: Male

DRUGS (3)
  1. ENBREL [Suspect]
     Active Substance: ETANERCEPT
     Indication: REITER^S SYNDROME
     Dosage: 50 MG, QWK
     Route: 058
     Dates: start: 2002
  2. ENBREL [Suspect]
     Active Substance: ETANERCEPT
     Indication: COLITIS
  3. ENBREL [Suspect]
     Active Substance: ETANERCEPT
     Indication: IRITIS

REACTIONS (4)
  - Sinusitis [Unknown]
  - Nasopharyngitis [Unknown]
  - Off label use [Unknown]
  - Lung infection [Unknown]

NARRATIVE: CASE EVENT DATE: 201604
